FAERS Safety Report 7421617-6 (Version None)
Quarter: 2011Q2

REPORT INFORMATION
  Report Type: 
  Country: None (occurrence: None)
  Receive Date: 20110418
  Receipt Date: 20110405
  Transmission Date: 20111010
  Serious: Yes (Life-Threatening, Hospitalization)
  Sender: FDA-Public Use
  Company Number: FR-CELGENEUS-056-21880-09112079

PATIENT
  Sex: Female
  Weight: 50 kg

DRUGS (12)
  1. BISOPROLOL FUMARATE [Concomitant]
     Dosage: 10 MILLIGRAM
     Route: 048
  2. REVLIMID [Suspect]
     Indication: MANTLE CELL LYMPHOMA
     Dosage: 10 MILLIGRAM
     Route: 048
     Dates: start: 20091021, end: 20091105
  3. PARIET [Concomitant]
     Route: 048
     Dates: end: 20091106
  4. COKENZEN [Concomitant]
     Route: 048
     Dates: end: 20091106
  5. PRAVASTATIN [Concomitant]
     Dosage: 20 MILLIGRAM
     Route: 048
     Dates: end: 20091105
  6. LEXOMIL [Concomitant]
     Dosage: 3 MILLIGRAM
     Route: 048
     Dates: start: 20091105
  7. ART 50 [Concomitant]
     Dosage: 50 MILLIGRAM
     Route: 048
  8. ATARAX [Concomitant]
     Dosage: 25 MILLIGRAM
     Route: 048
     Dates: start: 20091105, end: 20091105
  9. VASTAREL [Concomitant]
     Indication: VERTIGO
     Dosage: 20 MILLIGRAM
     Route: 048
     Dates: end: 20091106
  10. ART 50 [Concomitant]
  11. KARDEGIC [Concomitant]
     Dosage: 75 MILLIGRAM
     Route: 048
  12. ASPIRIN [Concomitant]
     Indication: HYPERTENSION
     Dosage: {=100MG
     Route: 065

REACTIONS (2)
  - RENAL FAILURE [None]
  - DERMATITIS ALLERGIC [None]
